FAERS Safety Report 15876725 (Version 3)
Quarter: 2019Q1

REPORT INFORMATION
  Report Type: Spontaneous
  Country: US (occurrence: US)
  Receive Date: 20190127
  Receipt Date: 20190325
  Transmission Date: 20190417
  Serious: No
  Sender: FDA-Public Use
  Company Number: US-ASTRAZENECA-2019SE08169

PATIENT
  Age: 66 Year
  Sex: Female
  Weight: 127 kg

DRUGS (1)
  1. BYDUREON BCISE [Suspect]
     Active Substance: EXENATIDE
     Indication: TYPE 2 DIABETES MELLITUS
     Route: 058
     Dates: start: 2018

REACTIONS (7)
  - Injection site mass [Recovering/Resolving]
  - Injection site extravasation [Unknown]
  - Intentional device misuse [Unknown]
  - Injection site haemorrhage [Recovered/Resolved]
  - Incorrect dose administered [Unknown]
  - Device issue [Unknown]
  - Hypoacusis [Unknown]

NARRATIVE: CASE EVENT DATE: 2018
